FAERS Safety Report 8996579 (Version 1)
Quarter: 2013Q1

REPORT INFORMATION
  Report Type: Spontaneous
  Country: US (occurrence: US)
  Receive Date: 20130104
  Receipt Date: 20130104
  Transmission Date: 20140127
  Serious: No
  Sender: FDA-Public Use
  Company Number: US-PFIZER INC-2013001568

PATIENT
  Age: 60 Year
  Sex: Female
  Weight: 104.31 kg

DRUGS (5)
  1. CHANTIX [Suspect]
     Indication: SMOKING CESSATION THERAPY
     Dosage: 0.5 MG, 1X/DAY
     Route: 048
     Dates: start: 201212, end: 201212
  2. CHANTIX [Suspect]
     Dosage: 0.5 MG, 2X/DAY
     Route: 048
     Dates: start: 201212
  3. LISINOPRIL [Concomitant]
     Dosage: 20 MG, 1X/DAY
  4. XANAX [Concomitant]
     Dosage: 0.5 MG, 1X/DAY
  5. SERTRALINE [Concomitant]
     Dosage: 50 MG, 1X/DAY

REACTIONS (1)
  - Nausea [Not Recovered/Not Resolved]
